FAERS Safety Report 24968139 (Version 1)
Quarter: 2025Q1

REPORT INFORMATION
  Report Type: Spontaneous
  Country: US (occurrence: US)
  Receive Date: 20250214
  Receipt Date: 20250214
  Transmission Date: 20250408
  Serious: No
  Sender: ROCHE
  Company Number: US-ROCHE-10000205514

PATIENT
  Sex: Female

DRUGS (1)
  1. HEMLIBRA [Suspect]
     Active Substance: EMICIZUMAB-KXWH
     Indication: Factor VIII deficiency
     Dosage: STRENGTH- 150MG/ML, 60MG/0.4ML
     Route: 058
     Dates: start: 202207

REACTIONS (3)
  - Raynaud^s phenomenon [Unknown]
  - Arthralgia [Unknown]
  - Muscular weakness [Unknown]
